FAERS Safety Report 7245535-1 (Version None)
Quarter: 2011Q1

REPORT INFORMATION
  Report Type: 
  Country: None (occurrence: None)
  Receive Date: 20110126
  Receipt Date: 20101213
  Transmission Date: 20110831
  Serious: Yes (Death, Life-Threatening, Hospitalization, Other)
  Sender: FDA-Public Use
  Company Number: US-BAXTER-2009BH019528

PATIENT
  Age: 40 Year
  Sex: Male

DRUGS (13)
  1. FOSRENOL [Concomitant]
     Indication: PRODUCT USED FOR UNKNOWN INDICATION
     Route: 065
  2. RENAGEL [Concomitant]
     Indication: PRODUCT USED FOR UNKNOWN INDICATION
     Route: 065
  3. IRON [Concomitant]
     Indication: PRODUCT USED FOR UNKNOWN INDICATION
     Route: 065
  4. GABAPENTIN [Concomitant]
     Indication: PRODUCT USED FOR UNKNOWN INDICATION
     Route: 065
  5. LOTENSIN [Concomitant]
     Indication: PRODUCT USED FOR UNKNOWN INDICATION
     Route: 065
  6. SENSIPAR [Concomitant]
     Indication: PRODUCT USED FOR UNKNOWN INDICATION
     Route: 065
  7. LOVENOX [Concomitant]
     Indication: PRODUCT USED FOR UNKNOWN INDICATION
     Route: 065
     Dates: start: 20080107
  8. HEPARIN SODIUM INJECTION [Suspect]
     Route: 058
     Dates: start: 20080131, end: 20080202
  9. RENAL SOFT GEL [Concomitant]
     Indication: PRODUCT USED FOR UNKNOWN INDICATION
     Route: 065
  10. HEPARIN SODIUM INJECTION [Suspect]
     Indication: HAEMODIALYSIS
     Route: 042
     Dates: start: 20071201, end: 20080422
  11. PHOSLO [Concomitant]
     Indication: PRODUCT USED FOR UNKNOWN INDICATION
     Route: 065
  12. AVELOX [Concomitant]
     Indication: PRODUCT USED FOR UNKNOWN INDICATION
     Route: 065
     Dates: start: 20080131
  13. CLONIDINE [Concomitant]
     Indication: PRODUCT USED FOR UNKNOWN INDICATION
     Route: 065

REACTIONS (17)
  - DEATH [None]
  - RESPIRATORY FAILURE [None]
  - HYPOTENSION [None]
  - LEFT VENTRICULAR HYPERTROPHY [None]
  - MYOCARDIAL INFARCTION [None]
  - HYPOAESTHESIA [None]
  - COORDINATION ABNORMAL [None]
  - COUGH [None]
  - PULMONARY HYPERTENSION [None]
  - HYPERSENSITIVITY [None]
  - CHEST PAIN [None]
  - CARDIO-RESPIRATORY ARREST [None]
  - MUSCLE TWITCHING [None]
  - CARDIAC FAILURE CONGESTIVE [None]
  - MENTAL STATUS CHANGES [None]
  - CARDIOMEGALY [None]
  - TREMOR [None]
